FAERS Safety Report 4997156-9 (Version None)
Quarter: 2006Q2

REPORT INFORMATION
  Report Type: 
  Country: None (occurrence: None)
  Receive Date: 20060509
  Receipt Date: 20060427
  Transmission Date: 20061013
  Serious: Yes (Hospitalization)
  Sender: FDA-Public Use
  Company Number: US-GILEAD-2006-0009510

PATIENT
  Age: 51 Year
  Sex: Male
  Weight: 116.36 kg

DRUGS (22)
  1. BLINDED TENOFOVIR DF [Suspect]
     Indication: HIV INFECTION
     Route: 048
     Dates: start: 20051208
  2. NORVIR [Concomitant]
     Indication: HIV INFECTION
     Route: 048
     Dates: start: 20050718
  3. COMBIVIR [Concomitant]
     Indication: HIV INFECTION
     Route: 048
     Dates: start: 20031029
  4. REYATAZ [Concomitant]
     Indication: HIV INFECTION
     Route: 048
     Dates: start: 20031029
  5. ADVAIR INHALER [Concomitant]
     Indication: RESPIRATORY DISORDER
     Route: 055
     Dates: start: 20031210
  6. AMBIEN [Concomitant]
     Indication: INSOMNIA
     Route: 048
     Dates: start: 20060105
  7. DOXEPIN [Concomitant]
     Indication: DRUG ERUPTION
     Route: 048
     Dates: start: 20060105
  8. DIPHENHYDRAMINE HCL [Concomitant]
     Indication: DRUG ERUPTION
     Route: 048
     Dates: start: 20040131
  9. AVELOX [Concomitant]
     Indication: LUNG INFECTION
     Route: 048
  10. ALBUTEROL [Concomitant]
     Indication: RESPIRATORY DISORDER
     Route: 055
     Dates: start: 20060105
  11. SKELAXIN [Concomitant]
     Indication: MUSCLE SPASMS
     Route: 048
     Dates: start: 20060222
  12. ELIDEL CREAM 1% [Concomitant]
     Indication: RASH
     Route: 061
     Dates: start: 20031017
  13. ZYRTEC [Concomitant]
     Indication: HYPERSENSITIVITY
     Route: 048
     Dates: start: 20031017
  14. LANTUS [Concomitant]
     Indication: DIABETES MELLITUS
     Route: 058
     Dates: start: 20060105
  15. NOVOLOG [Concomitant]
     Indication: HYPERGLYCAEMIA
     Route: 058
     Dates: start: 20040225
  16. CLOTRIMAZOLE [Concomitant]
     Indication: ECZEMA
     Route: 061
     Dates: start: 20040327
  17. TESSALON [Concomitant]
     Indication: COUGH
     Route: 048
     Dates: start: 20050406
  18. TUSSIONEX [Concomitant]
     Indication: COUGH
     Route: 048
     Dates: start: 20050407
  19. HYZAAR [Concomitant]
     Indication: HYPERTENSION
     Route: 048
     Dates: start: 20050710
  20. ALBUTEROL [Concomitant]
     Indication: RESPIRATORY TRACT CONGESTION
     Route: 055
     Dates: start: 20050401
  21. ACYCLOVIR [Concomitant]
     Indication: HERPES ZOSTER
     Route: 048
     Dates: start: 20050401
  22. CYMBALTA [Concomitant]
     Indication: DEPRESSION
     Route: 048
     Dates: start: 20050715

REACTIONS (1)
  - SYNCOPE [None]
